APPROVED DRUG PRODUCT: CARNITOR SF
Active Ingredient: LEVOCARNITINE
Strength: 1GM/10ML
Dosage Form/Route: SOLUTION;ORAL
Application: N019257 | Product #002 | TE Code: AA
Applicant: LEADIANT BIOSCIENCES INC
Approved: Mar 28, 2007 | RLD: Yes | RS: No | Type: RX